FAERS Safety Report 16044756 (Version 1)
Quarter: 2019Q1

REPORT INFORMATION
  Report Type: Spontaneous
  Country: US (occurrence: US)
  Receive Date: 20190307
  Receipt Date: 20190307
  Transmission Date: 20190418
  Serious: Yes (Death)
  Sender: FDA-Public Use
  Company Number: US-BIOGEN-2006BI013605

PATIENT
  Age: 48 Year
  Sex: Male

DRUGS (6)
  1. BACLOFEN. [Concomitant]
     Active Substance: BACLOFEN
  2. AVONEX [Suspect]
     Active Substance: INTERFERON BETA-1A
     Route: 030
  3. OXYBUTININ [Concomitant]
     Active Substance: OXYBUTYNIN
  4. AVONEX [Suspect]
     Active Substance: INTERFERON BETA-1A
     Indication: PROGRESSIVE MULTIPLE SCLEROSIS
     Route: 030
     Dates: start: 200404, end: 200609
  5. DOCUSATE [Concomitant]
     Active Substance: DOCUSATE
  6. TIZANIDINE. [Concomitant]
     Active Substance: TIZANIDINE

REACTIONS (3)
  - Myocardial infarction [Fatal]
  - Progressive multiple sclerosis [Unknown]
  - Off label use [Unknown]

NARRATIVE: CASE EVENT DATE: 20060924
